FAERS Safety Report 8342794-9 (Version None)
Quarter: 2012Q2

REPORT INFORMATION
  Report Type: 
  Country: None (occurrence: None)
  Receive Date: 20120508
  Receipt Date: 20120425
  Transmission Date: 20120825
  Serious: Yes (Life-Threatening, Hospitalization, Other)
  Sender: FDA-Public Use
  Company Number: JP-BAYER-200812631BYL

PATIENT
  Age: 57 Year
  Sex: Male
  Weight: 52.7 kg

DRUGS (9)
  1. PAROXETINE HCL [Concomitant]
     Dosage: 20 MG (DAILY DOSE), , ORAL
     Route: 048
     Dates: start: 20080414, end: 20080925
  2. HALOPERIDOL [Concomitant]
     Dosage: 0.75 MG (DAILY DOSE), , ORAL
     Route: 048
     Dates: start: 20080515, end: 20080824
  3. NEXAVAR [Suspect]
     Indication: RENAL CELL CARCINOMA
     Dosage: 800 MG (DAILY DOSE), , ORAL
     Route: 048
     Dates: start: 20080528, end: 20080809
  4. NEXAVAR [Suspect]
     Dosage: 800 MG (DAILY DOSE), , ORAL
     Route: 048
     Dates: start: 20080817, end: 20080924
  5. NEXAVAR [Suspect]
     Dosage: 400 MG (DAILY DOSE), , ORAL
     Route: 048
     Dates: start: 20080810, end: 20080816
  6. DOGMATYL [Concomitant]
     Dosage: 150 MG (DAILY DOSE), , ORAL
     Route: 048
     Dates: start: 20080509, end: 20080925
  7. METOCLOPRAMIDE [Concomitant]
     Dosage: 15 MG (DAILY DOSE), , ORAL
     Route: 048
     Dates: start: 20080513, end: 20080610
  8. ATARAX [Concomitant]
     Dosage: 25 MG (DAILY DOSE), , ORAL
     Route: 048
     Dates: start: 20080515, end: 20080824
  9. CEFCAPENE PIVOXIL HYDROCHLORIDE [Concomitant]
     Indication: INFECTION PROPHYLAXIS
     Dosage: 300 MG (DAILY DOSE), , ORAL
     Route: 048
     Dates: start: 20080924, end: 20080925

REACTIONS (10)
  - ALOPECIA [None]
  - NAUSEA [None]
  - MALAISE [None]
  - FATIGUE [None]
  - DIARRHOEA [None]
  - PALMAR-PLANTAR ERYTHRODYSAESTHESIA SYNDROME [None]
  - CONSTIPATION [None]
  - IDIOPATHIC THROMBOCYTOPENIC PURPURA [None]
  - GASTROINTESTINAL HAEMORRHAGE [None]
  - AMYLASE INCREASED [None]
